FAERS Safety Report 6406488-9 (Version None)
Quarter: 2009Q4

REPORT INFORMATION
  Report Type: 
  Country: None (occurrence: None)
  Receive Date: 20091019
  Receipt Date: 20091006
  Transmission Date: 20100525
  Serious: Yes (Life-Threatening, Hospitalization)
  Sender: FDA-Public Use
  Company Number: LB-GENENTECH-267113

PATIENT
  Sex: Female
  Weight: 66 kg

DRUGS (2)
  1. BEVACIZUMAB [Suspect]
     Indication: BREAST CANCER METASTATIC
     Dosage: 1000 MG, Q21D
     Route: 042
     Dates: start: 20080512
  2. DOCETAXEL [Suspect]
     Indication: BREAST CANCER METASTATIC
     Dosage: 100 MG, Q21D
     Route: 042
     Dates: start: 20080428

REACTIONS (2)
  - FEBRILE NEUTROPENIA [None]
  - GASTROINTESTINAL OBSTRUCTION [None]
